FAERS Safety Report 8027884-2 (Version None)
Quarter: 2012Q1

REPORT INFORMATION
  Report Type: 
  Country: None (occurrence: None)
  Receive Date: 20120106
  Receipt Date: 20111231
  Transmission Date: 20120608
  Serious: Yes (Hospitalization, Other)
  Sender: FDA-Public Use
  Company Number: CN-PFIZER INC-2012001413

PATIENT
  Age: 79 Year
  Sex: Male

DRUGS (15)
  1. THEOPHYLLINE [Concomitant]
     Dosage: TAKEN INTERMITTENTLY
  2. OXYCODONE HYDROCHLORIDE [Suspect]
     Dosage: ONE TABLET ONCE DAILY
     Route: 048
     Dates: start: 20111217
  3. NIFEDIPINE [Concomitant]
     Dosage: 20 MG, 2X/DAY
     Route: 048
  4. LOTENSIN [Concomitant]
     Dosage: 10MG, ONCE DAILY
     Route: 048
  5. DIGOXIN [Concomitant]
     Dosage: 1/2 TABLET, ONCE DAILY
     Route: 048
  6. RABEPRAZOLE [Concomitant]
     Dosage: UNK, TAKEN INTERMITTENTLY
  7. OXYCODONE HYDROCHLORIDE [Suspect]
     Indication: POST HERPETIC NEURALGIA
     Dosage: A HALF OF ONE TABLET ONCE DAILY
     Route: 048
     Dates: start: 20110801, end: 20111217
  8. IPRATROPIUM BROMIDE [Concomitant]
     Dosage: UNK
  9. SALMETEROL XINAFOATE [Concomitant]
     Dosage: UNK
  10. AMITRIPTYLINE [Suspect]
     Indication: POST HERPETIC NEURALGIA
     Dosage: ONE TABLET ONCE DAILY
     Route: 048
     Dates: start: 20110801
  11. AMITRIPTYLINE [Suspect]
     Dosage: 1/4 TABLET ONCE DAILY
     Route: 048
  12. ACETYLSALICYLIC ACID [Concomitant]
     Dosage: 100MG, ONCE DAILY
  13. FLUTICASONE [Concomitant]
     Dosage: UNK
  14. LYRICA [Suspect]
     Indication: POST HERPETIC NEURALGIA
     Dosage: 1 CAPSULE ONCE DAILY
     Route: 048
     Dates: start: 20110801, end: 20111215
  15. ISOSORBIDE DINITRATE [Concomitant]
     Dosage: ONE TABLET, ONCE DAILY
     Route: 048

REACTIONS (13)
  - PARALYSIS [None]
  - SPINAL OSTEOARTHRITIS [None]
  - FORMICATION [None]
  - FALL [None]
  - RENAL CYST [None]
  - PAIN IN EXTREMITY [None]
  - CEREBRAL ATROPHY [None]
  - ARTERIOSCLEROSIS [None]
  - CEREBRAL ISCHAEMIA [None]
  - HYPOAESTHESIA [None]
  - RADICULOPATHY [None]
  - PRURITUS GENERALISED [None]
  - ASTHENIA [None]
